FAERS Safety Report 20981546 (Version 2)
Quarter: 2022Q4

REPORT INFORMATION
  Report Type: Spontaneous
  Country: US (occurrence: US)
  Receive Date: 20220620
  Receipt Date: 20221130
  Transmission Date: 20230113
  Serious: No
  Sender: FDA-Public Use
  Company Number: US-Blueprint Medicines Corporation-SP-US-2022-001785

PATIENT
  Age: 67 Year
  Sex: Female

DRUGS (3)
  1. AYVAKIT [Suspect]
     Active Substance: AVAPRITINIB
     Indication: Systemic mastocytosis
     Dosage: TAKE TWO TABLETS BY MOUTH ALTERNATING WITH 1 TABLET THE NEXT DAY
     Route: 048
     Dates: start: 20160701
  2. AYVAKIT [Suspect]
     Active Substance: AVAPRITINIB
     Dosage: 25MG ALTERNATING WITH 50MG EVERY OTHER DAY
     Route: 065
     Dates: start: 20210827
  3. AYVAKIT [Suspect]
     Active Substance: AVAPRITINIB
     Dosage: 25MG ALTERNATING WITH 50MG EVERY OTHER DAY
     Route: 065
     Dates: start: 20210827

REACTIONS (3)
  - Lung disorder [Recovered/Resolved]
  - Tryptase increased [Not Recovered/Not Resolved]
  - Off label use [Unknown]

NARRATIVE: CASE EVENT DATE: 20220513
